FAERS Safety Report 5443757-3 (Version None)
Quarter: 2007Q3

REPORT INFORMATION
  Report Type: 
  Country: None (occurrence: None)
  Receive Date: 20070905
  Receipt Date: 20070827
  Transmission Date: 20080115
  Serious: Yes (Hospitalization)
  Sender: FDA-Public Use
  Company Number: NL-PFIZER INC-2007051064

PATIENT
  Sex: Female
  Weight: 83 kg

DRUGS (2)
  1. AROMASIN [Suspect]
     Indication: BREAST CANCER
     Route: 048
     Dates: start: 20030117, end: 20050726
  2. HYDROCHLOROTHIAZIDE [Concomitant]

REACTIONS (3)
  - ARTHRITIS [None]
  - JOINT SWELLING [None]
  - OSTEOARTHRITIS [None]
